FAERS Safety Report 8219659-6 (Version None)
Quarter: 2012Q1

REPORT INFORMATION
  Report Type: 
  Country: None (occurrence: None)
  Receive Date: 20120319
  Receipt Date: 20120314
  Transmission Date: 20120608
  Serious: Yes (Death, Hospitalization, Other)
  Sender: FDA-Public Use
  Company Number: US-CELGENEUS-163-21880-11102719

PATIENT
  Sex: Male
  Weight: 110.78 kg

DRUGS (6)
  1. CENTRUM [Concomitant]
     Route: 065
  2. SYNTHROID [Concomitant]
     Route: 065
  3. PREVACID [Concomitant]
     Route: 065
  4. REVLIMID [Suspect]
     Indication: MYELODYSPLASTIC SYNDROME
     Dosage: 10 MILLIGRAM
     Route: 048
     Dates: start: 20111014
  5. SERTRALINE HYDROCHLORIDE [Concomitant]
     Route: 065
  6. VICODIN [Concomitant]
     Route: 065

REACTIONS (3)
  - ACUTE MYELOID LEUKAEMIA [None]
  - PYREXIA [None]
  - MYELODYSPLASTIC SYNDROME TRANSFORMATION [None]
